FAERS Safety Report 21602482 (Version 2)
Quarter: 2022Q4

REPORT INFORMATION
  Report Type: Spontaneous
  Country: JP (occurrence: JP)
  Receive Date: 20221116
  Receipt Date: 20221205
  Transmission Date: 20230113
  Serious: Yes (Other)
  Sender: FDA-Public Use
  Company Number: JP-ELI_LILLY_AND_COMPANY-JP202211003431

PATIENT
  Age: 67 Year
  Sex: Female

DRUGS (2)
  1. CYRAMZA [Suspect]
     Active Substance: RAMUCIRUMAB
     Indication: Colon cancer stage IV
     Dosage: UNK
     Route: 041
     Dates: start: 20220105, end: 20220817
  2. CYRAMZA [Suspect]
     Active Substance: RAMUCIRUMAB
     Indication: Metastases to peritoneum

REACTIONS (1)
  - Mesenteric vein thrombosis [Recovered/Resolved]

NARRATIVE: CASE EVENT DATE: 20220831
